FAERS Safety Report 21305392 (Version 1)
Quarter: 2022Q3

REPORT INFORMATION
  Report Type: Spontaneous
  Country: US (occurrence: None)
  Receive Date: 20220908
  Receipt Date: 20220908
  Transmission Date: 20221027
  Serious: No
  Sender: FDA-Public Use
  Company Number: 2022A285134

PATIENT
  Age: 27888 Day
  Sex: Male
  Weight: 117.9 kg

DRUGS (2)
  1. BYDUREON BCISE [Suspect]
     Active Substance: EXENATIDE
     Indication: Diabetes mellitus
     Route: 058
  2. BYDUREON [Suspect]
     Active Substance: EXENATIDE
     Indication: Diabetes mellitus
     Route: 058

REACTIONS (12)
  - Diabetes mellitus inadequate control [Unknown]
  - Injection site injury [Unknown]
  - Injection site pain [Unknown]
  - Pulse abnormal [Unknown]
  - Hypokinesia [Unknown]
  - Arterial occlusive disease [Unknown]
  - Gait inability [Unknown]
  - Herpes zoster [Unknown]
  - Limb discomfort [Unknown]
  - Injection site haemorrhage [Unknown]
  - Device delivery system issue [Unknown]
  - Drug dose omission by device [Unknown]

NARRATIVE: CASE EVENT DATE: 20220810
